FAERS Safety Report 6892529-1 (Version None)
Quarter: 2010Q3

REPORT INFORMATION
  Report Type: 
  Country: None (occurrence: None)
  Receive Date: 20100731
  Receipt Date: 20080625
  Transmission Date: 20110219
  Serious: No
  Sender: FDA-Public Use
  Company Number: US-PFIZER INC-2008040207

PATIENT
  Sex: Male
  Weight: 70.5 kg

DRUGS (3)
  1. NORVASC [Suspect]
     Indication: HYPERTENSION
     Route: 048
     Dates: start: 20020101
  2. AMLODIPINE [Suspect]
     Indication: HYPERTENSION
     Dates: start: 20050101, end: 20050101
  3. ASACOL [Concomitant]

REACTIONS (1)
  - BLOOD PRESSURE INADEQUATELY CONTROLLED [None]
